FAERS Safety Report 8369742-X (Version None)
Quarter: 2012Q1

REPORT INFORMATION
  Report Type: 
  Country: None (occurrence: None)
  Receive Date: 20120323
  Receipt Date: 20111222
  Transmission Date: 20120608
  Serious: Yes (Hospitalization)
  Sender: FDA-Public Use
  Company Number: 163-21880-11113842

PATIENT
  Age: 69 Year
  Sex: Female

DRUGS (4)
  1. ATENOLOL [Concomitant]
  2. REVLIMID [Suspect]
     Indication: MULTIPLE MYELOMA
     Dosage: 10 MG, PO
     Route: 048
     Dates: start: 20111102, end: 20111109
  3. REVLIMID [Suspect]
     Indication: MULTIPLE MYELOMA
     Dosage: 10 MG, PO
     Route: 048
     Dates: start: 20111127, end: 20111129
  4. ALLOPURINOL [Concomitant]

REACTIONS (3)
  - RASH [None]
  - PYREXIA [None]
  - NEUTROPENIA [None]
